FAERS Safety Report 8774105 (Version 1)
Quarter: 2012Q4

REPORT INFORMATION
  Report Type: 
  Country: US (occurrence: US)
  Receive Date: 20120908
  Receipt Date: 20120908
  Transmission Date: 20130627
  Serious: Yes (Other)
  Sender: FDA-Public Use
  Company Number: US-ABBOTT-12P-163-0975603-00

PATIENT
  Age: 65 Year
  Sex: Female

DRUGS (2)
  1. LEVOTHYROXINE [Suspect]
     Indication: HYPOTHYROIDISM
  2. ORLISTAT [Interacting]
     Indication: WEIGHT DECREASED

REACTIONS (2)
  - Syncope [Recovered/Resolved]
  - Drug interaction [Recovered/Resolved]
